FAERS Safety Report 10503983 (Version 2)
Quarter: 2014Q4

REPORT INFORMATION
  Report Type: Spontaneous
  Country: US (occurrence: US)
  Receive Date: 20141008
  Receipt Date: 20141008
  Transmission Date: 20150528
  Serious: No
  Sender: FDA-Public Use
  Company Number: US-BEH-2013034755

PATIENT
  Age: 48 Year
  Sex: Female
  Weight: 60 kg

DRUGS (42)
  1. PRIVIGEN [Suspect]
     Active Substance: HUMAN IMMUNOGLOBULIN G
     Dosage: 20 GM VIAL; PER MANUFACTURER GUIDELINE OVER APPROXIMATELY 2 HOURS AS TOLERATED
     Route: 042
  2. PATANASE [Concomitant]
     Active Substance: OLOPATADINE HYDROCHLORIDE
     Dosage: 0.6%
     Route: 045
  3. LORATADINE. [Concomitant]
     Active Substance: LORATADINE
  4. OMEPRAZOLE. [Concomitant]
     Active Substance: OMEPRAZOLE
  5. BETHAMETHASONE [Concomitant]
     Active Substance: CLOTRIMAZOLE
  6. DIPHENHYDRAMINE [Concomitant]
     Active Substance: DIPHENHYDRAMINE
     Indication: PREMEDICATION
  7. SODIUM CHLORIDE. [Concomitant]
     Active Substance: SODIUM CHLORIDE
  8. ERYTHROMYCIN. [Concomitant]
     Active Substance: ERYTHROMYCIN
  9. CLINDAMYCIN [Concomitant]
     Active Substance: CLINDAMYCIN\CLINDAMYCIN PHOSPHATE
  10. DOXYCYCLINE. [Concomitant]
     Active Substance: DOXYCYCLINE
  11. MULTIVITAMINS [Concomitant]
     Active Substance: VITAMINS
  12. EPIPEN [Concomitant]
     Active Substance: EPINEPHRINE
     Indication: PREMEDICATION
  13. PREDNISONE. [Concomitant]
     Active Substance: PREDNISONE
  14. AMITRIPTYLINE [Concomitant]
     Active Substance: AMITRIPTYLINE
  15. ALIGN [Concomitant]
     Active Substance: BIFIDOBACTERIUM LONGUM SUBSP. INFANTIS
     Route: 048
  16. PRIVIGEN [Suspect]
     Active Substance: HUMAN IMMUNOGLOBULIN G
     Route: 042
  17. PRIVIGEN [Suspect]
     Active Substance: HUMAN IMMUNOGLOBULIN G
     Dosage: 20 GM VIAL
     Route: 042
  18. CHOLESTYRAMINE. [Concomitant]
     Active Substance: CHOLESTYRAMINE
  19. IBUPROFEN. [Concomitant]
     Active Substance: IBUPROFEN
  20. ACIDOPHILUS [Concomitant]
     Active Substance: LACTOBACILLUS ACIDOPHILUS
  21. CEFPROZIL. [Concomitant]
     Active Substance: CEFPROZIL
  22. ALBUTEROL. [Concomitant]
     Active Substance: ALBUTEROL
     Dosage: 0.083%
     Route: 055
  23. PRIVIGEN [Suspect]
     Active Substance: HUMAN IMMUNOGLOBULIN G
     Dosage: 20 GM; OVER 2 HRS
     Route: 042
  24. SYMBICORT [Concomitant]
     Active Substance: BUDESONIDE\FORMOTEROL FUMARATE DIHYDRATE
  25. PRIVIGEN [Suspect]
     Active Substance: HUMAN IMMUNOGLOBULIN G
     Dosage: OVER APPROXIMATELY 2 HOURS AS TOLERATED
     Route: 042
     Dates: start: 20130725
  26. PRIVIGEN [Suspect]
     Active Substance: HUMAN IMMUNOGLOBULIN G
     Route: 042
  27. PSEUDOEPHEDRINE [Concomitant]
     Active Substance: PSEUDOEPHEDRINE
  28. LEVAQUIN [Concomitant]
     Active Substance: LEVOFLOXACIN
  29. GAS-X [Concomitant]
     Active Substance: DIMETHICONE
  30. CEPHALEXIN. [Concomitant]
     Active Substance: CEPHALEXIN
  31. AYR [Concomitant]
     Route: 045
  32. MEDROXYPROGESTERONE [Concomitant]
     Active Substance: MEDROXYPROGESTERONE
  33. SALINE [Concomitant]
     Active Substance: SODIUM CHLORIDE
     Dosage: 0.65%
     Route: 045
  34. BUDESONIDE. [Concomitant]
     Active Substance: BUDESONIDE
  35. FLUCONAZOLE. [Concomitant]
     Active Substance: FLUCONAZOLE
  36. NYSTATIN. [Concomitant]
     Active Substance: NYSTATIN
     Dosage: 100,000 UNITS/ML SUSPENSION
  37. PRIVIGEN [Suspect]
     Active Substance: HUMAN IMMUNOGLOBULIN G
     Indication: HYPOGAMMAGLOBULINAEMIA
     Route: 042
  38. CHLORPHENIRAMINE [Concomitant]
     Active Substance: CHLORPHENIRAMINE
     Route: 048
  39. LEVOFLOXACIN. [Concomitant]
     Active Substance: LEVOFLOXACIN
     Dosage: IN D5W 250/50ML
  40. DOXYCYCLINE. [Concomitant]
     Active Substance: DOXYCYCLINE
  41. AZITHROMYCIN [Concomitant]
     Active Substance: AZITHROMYCIN ANHYDROUS
  42. IMODIUM [Concomitant]
     Active Substance: LOPERAMIDE HYDROCHLORIDE

REACTIONS (8)
  - Sinusitis [Unknown]
  - Peripheral swelling [Unknown]
  - Sinusitis [Unknown]
  - Upper respiratory tract infection [Unknown]
  - Headache [Unknown]
  - Muscle spasms [Unknown]
  - Sinusitis [Not Recovered/Not Resolved]
  - Pain [Unknown]

NARRATIVE: CASE EVENT DATE: 20130725
